FAERS Safety Report 6484867-1 (Version None)
Quarter: 2009Q4

REPORT INFORMATION
  Report Type: 
  Country: None (occurrence: None)
  Receive Date: 20091203
  Receipt Date: 20091124
  Transmission Date: 20100525
  Serious: Yes (Other)
  Sender: FDA-Public Use
  Company Number: 2009JP007038

PATIENT
  Age: 4 Year
  Sex: Female

DRUGS (7)
  1. PROGRAF [Suspect]
     Indication: BONE MARROW TRANSPLANT
  2. FUNGUARD (MICAFUNGIN) INJECTION [Suspect]
     Dosage: 3 MG/KG, /D; 5 MG/KG, /D,
  3. LIP-AMPHOTERICIN (AMPHOTERICIN B) FORMULATION UNKNOWN [Suspect]
     Dosage: 5 MG/KG,/D
  4. METHOTREXATE [Concomitant]
  5. PREDNISOLONE [Concomitant]
  6. METHYLPREDNISOLONE (METHYLPREDNISOLONE SODIUM SUCCINATE) FORMULATION U [Concomitant]
  7. ATG (ANTITHYMOCYTE IMMUNOGLOBULIN (RABBIT)) FORMULATION UNKNOWN [Concomitant]

REACTIONS (3)
  - HYPOKALAEMIA [None]
  - LUNG INFILTRATION [None]
  - SYSTEMIC MYCOSIS [None]
